FAERS Safety Report 7510287-4 (Version None)
Quarter: 2011Q2

REPORT INFORMATION
  Report Type: 
  Country: None (occurrence: None)
  Receive Date: 20110527
  Receipt Date: 20110201
  Transmission Date: 20111010
  Serious: Yes (Other)
  Sender: FDA-Public Use
  Company Number: PHHY2011DK08505

PATIENT
  Sex: Female

DRUGS (2)
  1. ZOMETA [Suspect]
     Indication: OSTEOPOROSIS
     Dosage: 4 MG, UNK
     Route: 042
     Dates: start: 20090428, end: 20090901
  2. SUTENT [Suspect]
     Indication: RENAL CANCER METASTATIC
     Dosage: 25-50 MG DAILY
     Route: 048
     Dates: start: 20080402, end: 20100617

REACTIONS (2)
  - OSTEONECROSIS OF JAW [None]
  - PAIN IN JAW [None]
